FAERS Safety Report 17839393 (Version 1)
Quarter: 2020Q2

REPORT INFORMATION
  Report Type: Report from Study
  Country: TH (occurrence: TH)
  Receive Date: 20200529
  Receipt Date: 20200529
  Transmission Date: 20200714
  Serious: Yes (Death)
  Sender: FDA-Public Use
  Company Number: PHHY2019TH212965

PATIENT
  Sex: Male

DRUGS (1)
  1. ENTRESTO [Suspect]
     Active Substance: SACUBITRIL\VALSARTAN
     Indication: CARDIAC FAILURE
     Dosage: 0.5 DF (97MG SACUBITRIL /103MGVALSARTAN), BID
     Route: 048

REACTIONS (4)
  - Cardiac dysfunction [Fatal]
  - Wrong technique in product usage process [Unknown]
  - Pulmonary oedema [Fatal]
  - Fatigue [Fatal]
